FAERS Safety Report 9196873 (Version 1)
Quarter: 2013Q1

REPORT INFORMATION
  Report Type: Report from Study
  Country: FR (occurrence: FR)
  Receive Date: 20130328
  Receipt Date: 20130328
  Transmission Date: 20140127
  Serious: Yes (Death)
  Sender: FDA-Public Use
  Company Number: FR-SANOFI-AVENTIS-2013SA031491

PATIENT
  Sex: 0

DRUGS (2)
  1. OXALIPLATIN [Suspect]
     Indication: HEPATOCELLULAR CARCINOMA
     Dosage: 2-H INFUSION ON DAY 2
     Route: 065
  2. GEMCITABINE [Suspect]
     Indication: HEPATOCELLULAR CARCINOMA
     Dosage: ADMINISTERED ON DAY 1
     Route: 065

REACTIONS (2)
  - Respiratory failure [Fatal]
  - Dyspnoea [Fatal]
